FAERS Safety Report 5514707-6 (Version None)
Quarter: 2007Q4

REPORT INFORMATION
  Report Type: 
  Country: None (occurrence: None)
  Receive Date: 20071113
  Receipt Date: 20071102
  Transmission Date: 20080405
  Serious: Yes (Death, Life-Threatening, Hospitalization)
  Sender: FDA-Public Use
  Company Number: US-PFIZER INC-2007093011

PATIENT
  Age: 56 Year
  Sex: Male

DRUGS (2)
  1. SUTENT [Suspect]
     Indication: BLADDER TRANSITIONAL CELL CARCINOMA
     Route: 048
     Dates: start: 20061206, end: 20071017
  2. BEVACIZUMAB [Suspect]
     Indication: BLADDER TRANSITIONAL CELL CARCINOMA
     Route: 042
     Dates: start: 20061206, end: 20071008

REACTIONS (2)
  - ACIDOSIS [None]
  - INTUSSUSCEPTION [None]
